FAERS Safety Report 23277154 (Version 1)
Quarter: 2023Q4

REPORT INFORMATION
  Report Type: Report from Study
  Country: AR (occurrence: AR)
  Receive Date: 20231208
  Receipt Date: 20231208
  Transmission Date: 20240110
  Serious: Yes (Hospitalization, Other)
  Sender: FDA-Public Use
  Company Number: AR-Merck Healthcare KGaA-2023492249

PATIENT
  Age: 62 Year
  Sex: Female

DRUGS (2)
  1. MAVENCLAD [Suspect]
     Active Substance: CLADRIBINE
     Indication: Multiple sclerosis
     Dosage: YEAR ONE MONTH ONE THERAPY
     Route: 048
     Dates: start: 20201007, end: 20201011
  2. MAVENCLAD [Suspect]
     Active Substance: CLADRIBINE
     Dosage: YEAR ONE MONTH TWO THERAPY
     Route: 048
     Dates: start: 20201104, end: 20201108

REACTIONS (9)
  - General physical health deterioration [Unknown]
  - Blood glucose decreased [Unknown]
  - Hypotension [Unknown]
  - Confusional state [Unknown]
  - Wound infection bacterial [Unknown]
  - Decubitus ulcer [Unknown]
  - Multiple sclerosis relapse [Unknown]
  - Muscle atrophy [Unknown]
  - Complication associated with device [Unknown]

NARRATIVE: CASE EVENT DATE: 20230526
